FAERS Safety Report 25689094 (Version 1)
Quarter: 2025Q3

REPORT INFORMATION
  Report Type: Spontaneous
  Country: CN (occurrence: CN)
  Receive Date: 20250818
  Receipt Date: 20250818
  Transmission Date: 20251020
  Serious: Yes (Other)
  Sender: ROCHE
  Company Number: CN-BoehringerIngelheim-2025-BI-088396

PATIENT
  Age: 70 Year
  Sex: Male
  Weight: 60.0 kg

DRUGS (1)
  1. ALTEPLASE [Suspect]
     Active Substance: ALTEPLASE
     Indication: Cerebral infarction
     Route: 042
     Dates: start: 20250725, end: 20250725

REACTIONS (4)
  - Haemorrhage intracranial [Unknown]
  - Blood fibrinogen decreased [Recovered/Resolved]
  - Ecchymosis [Unknown]
  - Gastric occult blood positive [Unknown]

NARRATIVE: CASE EVENT DATE: 20250726
